FAERS Safety Report 8809836 (Version 3)
Quarter: 2013Q1

REPORT INFORMATION
  Report Type: Report from Study
  Country: US (occurrence: US)
  Receive Date: 20120926
  Receipt Date: 20130304
  Transmission Date: 20140127
  Serious: Yes (Hospitalization)
  Sender: FDA-Public Use
  Company Number: US-ACTELION-A-US2012-71630

PATIENT
  Age: 76 Year
  Sex: Female

DRUGS (2)
  1. TRACLEER [Suspect]
     Indication: PULMONARY ARTERIAL HYPERTENSION
     Dosage: UNK
     Route: 048
  2. COUMADIN [Concomitant]

REACTIONS (6)
  - Infection [Unknown]
  - Urinary tract infection [Unknown]
  - Pulmonary oedema [Unknown]
  - Oedema [Unknown]
  - Dyspnoea [Unknown]
  - Fatigue [Unknown]
